FAERS Safety Report 6698704-3 (Version None)
Quarter: 2010Q2

REPORT INFORMATION
  Report Type: 
  Country: None (occurrence: None)
  Receive Date: 20100427
  Receipt Date: 20090302
  Transmission Date: 20101027
  Serious: No
  Sender: FDA-Public Use
  Company Number: US-ASTRAZENECA-2009UW05770

PATIENT
  Age: 53 Year
  Sex: Male
  Weight: 86.2 kg

DRUGS (5)
  1. ZOMIG [Suspect]
     Indication: MIGRAINE
     Route: 045
     Dates: start: 20090101
  2. TEGRETOL [Concomitant]
     Indication: NEURALGIA
  3. VALIUM [Concomitant]
     Indication: JAW DISORDER
  4. LIPITOR [Concomitant]
     Indication: BLOOD CHOLESTEROL INCREASED
  5. MOTRIN [Concomitant]

REACTIONS (3)
  - BURNING SENSATION [None]
  - DIZZINESS [None]
  - PRODUCT TASTE ABNORMAL [None]
